FAERS Safety Report 23161694 (Version 5)
Quarter: 2024Q1

REPORT INFORMATION
  Report Type: Report from Study
  Country: DE (occurrence: DE)
  Receive Date: 20231108
  Receipt Date: 20240312
  Transmission Date: 20240410
  Serious: Yes (Other)
  Sender: FDA-Public Use
  Company Number: DE-AMGEN-DEUNI2023166409

PATIENT
  Age: 60 Year
  Sex: Female
  Weight: 50.4 kg

DRUGS (31)
  1. TRASTUZUMAB [Suspect]
     Active Substance: TRASTUZUMAB
     Indication: Breast cancer
     Dosage: 399 MILLIGRAM, ON 19/OCT/2023, SHE RECEIVED LAST DOSE PRIOR TO EVENT: 315 MGON 09/NOV/2023, SHE RECE
     Route: 065
     Dates: start: 20230817
  2. TRASTUZUMAB [Suspect]
     Active Substance: TRASTUZUMAB
     Dosage: 315 MILLIGRAM/ ON 28/SEP/2023, SHE RECEIVED MOST RECENT DOSE OF TRASTUZMAB 315 MG
     Route: 065
     Dates: start: 20230928
  3. DOCETAXEL [Suspect]
     Active Substance: DOCETAXEL\DOCETAXEL ANHYDROUS
     Indication: Breast cancer
     Dosage: 118 MILLIGRAM, ON 07/SEP/2023, SHE RECEIVED MOST RECENT DOSEON 19/OCT/2023, SHE RECEIVED LAST DOSE P
     Route: 065
     Dates: start: 20230817
  4. DOCETAXEL [Suspect]
     Active Substance: DOCETAXEL\DOCETAXEL ANHYDROUS
     Dosage: 118 MILLIGRAM, ON 07/SEP/2023, SHE RECEIVED MOST RECENT DOSE OF DOCETAXEL
     Route: 065
     Dates: start: 20230928
  5. PERJETA [Suspect]
     Active Substance: PERTUZUMAB
     Indication: Breast cancer
     Dosage: 840 MILLIGRAM, 20/AUG/2023: LAST DOSE PRIOR TO EVENT :840MG
     Route: 065
     Dates: start: 20230817
  6. PERJETA [Suspect]
     Active Substance: PERTUZUMAB
     Dosage: 420 MILLIGRAM, ON 19/OCT/2023 AND 09/NOV/2023, SHE RECEIVED LAST DOSE PRIOR EVENT: 420 MG
     Route: 065
     Dates: start: 20230907
  7. PERJETA [Suspect]
     Active Substance: PERTUZUMAB
     Dosage: 420 MILLIGRAM, ON 07/SEP/2023, SHE RECEIVED MOST RECENT DOSE OF PERTUZUMAB 420 MG
     Route: 065
     Dates: start: 20230928
  8. CARBOPLATIN [Suspect]
     Active Substance: CARBOPLATIN
     Indication: Breast cancer
     Dosage: 640 MILLIGRAM/ ON 28/SEP/2023, SHE RECEIVED MOST RECENT DOSE OF CARBOPLATIN 640 MG
     Route: 065
     Dates: start: 20230817, end: 20230817
  9. CARBOPLATIN [Suspect]
     Active Substance: CARBOPLATIN
     Dosage: 638 MILLIGRAM
     Route: 065
     Dates: start: 20230817
  10. CARBOPLATIN [Suspect]
     Active Substance: CARBOPLATIN
     Dosage: 690 MILLIGRAM
     Route: 065
     Dates: start: 20230907
  11. NEULASTA [Concomitant]
     Active Substance: PEGFILGRASTIM
     Dosage: 6 MILLIGRAM
     Route: 065
     Dates: start: 20230818, end: 20230929
  12. NEULASTA [Concomitant]
     Active Substance: PEGFILGRASTIM
     Dosage: 6 MILLIGRAM/ DATE OF LAST ADMINISTRATION: 01-DEC-2023
     Route: 065
     Dates: start: 20231110
  13. DIMETHINDENE MALEATE [Concomitant]
     Active Substance: DIMETHINDENE MALEATE
     Dosage: 04 MILLIGRAM
     Dates: start: 20230817
  14. ENOXAPARIN SODIUM [Concomitant]
     Active Substance: ENOXAPARIN SODIUM
     Dosage: 400 INTERNATIONAL UNIT, QD
     Dates: start: 20230817, end: 20230826
  15. AKYNZEO [Concomitant]
     Dosage: 300 MILLIGRAM
     Dates: start: 20230817
  16. DEXAMETHASONE [Concomitant]
     Active Substance: DEXAMETHASONE
     Dosage: 8 MILLIGRAM
     Dates: start: 20230817
  17. DEXAMETHASONE [Concomitant]
     Active Substance: DEXAMETHASONE
     Dosage: 8 MILLIGRAM
     Dates: start: 20230819
  18. DEXAMETHASONE [Concomitant]
     Active Substance: DEXAMETHASONE
     Dosage: 16 MILLIGRAM
     Dates: start: 20230906
  19. DEXAMETHASONE [Concomitant]
     Active Substance: DEXAMETHASONE
     Dosage: 8 MILLIGRAM
     Dates: start: 20230817
  20. DEXAMETHASONE [Concomitant]
     Active Substance: DEXAMETHASONE
     Dosage: UNK
     Dates: start: 20230818
  21. LOPERAMIDE [Concomitant]
     Active Substance: LOPERAMIDE
     Dosage: 2 MILLIGRAM
     Dates: start: 20230821, end: 20230827
  22. LOPERAMIDE [Concomitant]
     Active Substance: LOPERAMIDE
     Dosage: 4 MILLIGRAM
     Dates: start: 20230910, end: 20230929
  23. LOPERAMIDE [Concomitant]
     Active Substance: LOPERAMIDE
     Dosage: 4 MILLIGRAM
     Dates: start: 20231001
  24. VITAMIN D3 [Concomitant]
     Active Substance: CHOLECALCIFEROL
     Dosage: 2850 INTERNATIONAL UNIT, QWK
     Dates: start: 20230908, end: 20240205
  25. VITAMIN D3 [Concomitant]
     Active Substance: CHOLECALCIFEROL
     Dosage: 1430 INTERNATIONAL UNIT, QD
     Dates: start: 20240206
  26. Hysan [Concomitant]
     Dosage: DOSE: 1 HUB, TID
     Dates: start: 20230908
  27. Bepanthen [Concomitant]
     Dosage: DOSE: 1 CM
     Dates: start: 20230908, end: 20240205
  28. MCP [Concomitant]
     Active Substance: METOCLOPRAMIDE HYDROCHLORIDE
     Dosage: 10 MILLIGRAM, QD
     Dates: start: 20231007, end: 20231007
  29. ALLIUM CEPA [Concomitant]
     Active Substance: ONION
     Dosage: DOSE:5 GLOBULES, TID
     Dates: start: 20230908, end: 20231214
  30. NYVEPRIA [Concomitant]
     Active Substance: PEGFILGRASTIM-APGF
     Dosage: 6 MILLIGRAM
     Dates: start: 20231020, end: 20231120
  31. Hametum [Concomitant]
     Dosage: UNK UNK, BID, 05 CM
     Dates: start: 20231020

REACTIONS (19)
  - Polyneuropathy [Recovered/Resolved]
  - Dyspepsia [Recovered/Resolved]
  - Asthenia [Recovered/Resolved]
  - Dysgeusia [Recovering/Resolving]
  - Oedema peripheral [Recovered/Resolved]
  - Epistaxis [Recovered/Resolved]
  - Alopecia [Recovered/Resolved]
  - Diarrhoea [Recovered/Resolved]
  - Decreased appetite [Recovered/Resolved]
  - Dry skin [Recovered/Resolved]
  - Flushing [Recovered/Resolved]
  - Rash [Recovered/Resolved]
  - Vomiting [Recovered/Resolved]
  - Nausea [Recovered/Resolved]
  - Anal haemorrhage [Recovered/Resolved]
  - Nail disorder [Not Recovered/Not Resolved]
  - Nail discolouration [Not Recovered/Not Resolved]
  - Pain in extremity [Recovered/Resolved]
  - Illness [Recovered/Resolved]

NARRATIVE: CASE EVENT DATE: 20230818
